FAERS Safety Report 12276577 (Version 1)
Quarter: 2016Q2

REPORT INFORMATION
  Report Type: Spontaneous
  Country: US (occurrence: None)
  Receive Date: 20160415
  Receipt Date: 20160415
  Transmission Date: 20160815
  Serious: No
  Sender: FDA-Public Use
  Company Number: None

PATIENT
  Sex: Female
  Weight: 15.9 kg

DRUGS (1)
  1. ARIPIPRAZOLE 2 MG TORRENT [Suspect]
     Active Substance: ARIPIPRAZOLE
     Indication: AUTISM
     Route: 048
     Dates: start: 20160401, end: 20160412

REACTIONS (6)
  - Product substitution issue [None]
  - Restlessness [None]
  - Self injurious behaviour [None]
  - Condition aggravated [None]
  - Aggression [None]
  - Drug ineffective [None]
